FAERS Safety Report 21628402 (Version 2)
Quarter: 2023Q2

REPORT INFORMATION
  Report Type: Spontaneous
  Country: US (occurrence: US)
  Receive Date: 20221122
  Receipt Date: 20230516
  Transmission Date: 20230721
  Serious: No
  Sender: FDA-Public Use
  Company Number: US-ARCUTIS BIOTHERAPEUTICS INC-2022AER000015

PATIENT

DRUGS (4)
  1. ZORYVE [Suspect]
     Active Substance: ROFLUMILAST
     Indication: Rash
     Dosage: UNK, BID
     Route: 061
     Dates: start: 20220922, end: 20220926
  2. BRYHALI [Concomitant]
     Active Substance: HALOBETASOL PROPIONATE
     Indication: Product used for unknown indication
     Dosage: UNK
  3. CLOTRIMAZOLE [Concomitant]
     Active Substance: CLOTRIMAZOLE
     Indication: Product used for unknown indication
     Dosage: UNK
  4. NYSTATIN [Concomitant]
     Active Substance: NYSTATIN
     Indication: Product used for unknown indication
     Dosage: UNK

REACTIONS (11)
  - Vomiting [Recovered/Resolved]
  - Dizziness [Not Recovered/Not Resolved]
  - Asthenia [Not Recovered/Not Resolved]
  - Fatigue [Not Recovered/Not Resolved]
  - Weight decreased [Not Recovered/Not Resolved]
  - Diarrhoea [Recovered/Resolved]
  - Nausea [Not Recovered/Not Resolved]
  - Headache [Not Recovered/Not Resolved]
  - Application site pain [Unknown]
  - Off label use [Unknown]
  - Rash [Not Recovered/Not Resolved]

NARRATIVE: CASE EVENT DATE: 20220901
